FAERS Safety Report 5603999-0 (Version None)
Quarter: 2008Q1

REPORT INFORMATION
  Report Type: 
  Country: None (occurrence: None)
  Receive Date: 20080128
  Receipt Date: 20080110
  Transmission Date: 20080703
  Serious: Yes (Hospitalization)
  Sender: FDA-Public Use
  Company Number: FR-BAYER-200810727GPV

PATIENT
  Age: 69 Year
  Sex: Male

DRUGS (14)
  1. CIPROFLOXACIN HCL [Suspect]
     Indication: PYELONEPHRITIS
     Route: 048
     Dates: start: 20071125, end: 20071127
  2. BACTRIM [Suspect]
     Indication: PYELONEPHRITIS
     Route: 048
     Dates: start: 20071127, end: 20071206
  3. GENTAMICIN [Suspect]
     Indication: PYELONEPHRITIS
     Dosage: UNIT DOSE: 120 MG
     Route: 042
     Dates: start: 20071125, end: 20071127
  4. FORLAX [Suspect]
     Indication: DRUG USE FOR UNKNOWN INDICATION
     Route: 048
     Dates: start: 20071127, end: 20071201
  5. PREVISCAN [Suspect]
     Indication: DRUG USE FOR UNKNOWN INDICATION
     Route: 065
     Dates: start: 20071201, end: 20071202
  6. PREVISCAN [Suspect]
     Route: 065
     Dates: start: 20071125, end: 20071127
  7. PREVISCAN [Suspect]
     Route: 065
     Dates: start: 20071205, end: 20071206
  8. TRIATEC [Suspect]
     Indication: DRUG USE FOR UNKNOWN INDICATION
     Route: 065
     Dates: start: 20071130, end: 20071202
  9. BISOPROLOL FUMARATE [Concomitant]
     Indication: DRUG USE FOR UNKNOWN INDICATION
     Route: 065
  10. KARDEGIC [Concomitant]
     Indication: DRUG USE FOR UNKNOWN INDICATION
     Route: 065
  11. SKENAN [Concomitant]
     Indication: DRUG USE FOR UNKNOWN INDICATION
     Route: 065
  12. PRAVASTATIN [Concomitant]
     Indication: DRUG USE FOR UNKNOWN INDICATION
     Route: 065
  13. HUMALOG [Concomitant]
     Indication: DRUG USE FOR UNKNOWN INDICATION
     Route: 065
  14. NOVOLOG MIX 70/30 [Concomitant]
     Indication: DRUG USE FOR UNKNOWN INDICATION
     Route: 065

REACTIONS (3)
  - HYPERKALAEMIA [None]
  - LEUKOPENIA [None]
  - NEUTROPENIA [None]
